FAERS Safety Report 6197452-6 (Version None)
Quarter: 2009Q2

REPORT INFORMATION
  Report Type: 
  Country: None (occurrence: None)
  Receive Date: 20090521
  Receipt Date: 20090224
  Transmission Date: 20091009
  Serious: No
  Sender: FDA-Public Use
  Company Number: US-TEVA-186922USA

PATIENT
  Age: 66 Year
  Sex: Male

DRUGS (1)
  1. AZILECT [Suspect]

REACTIONS (1)
  - SOMNOLENCE [None]
